FAERS Safety Report 5495034-2 (Version None)
Quarter: 2007Q4

REPORT INFORMATION
  Report Type: 
  Country: None (occurrence: None)
  Receive Date: 20071024
  Receipt Date: 20071010
  Transmission Date: 20080405
  Serious: Yes (Death)
  Sender: FDA-Public Use
  Company Number: CA-SHR-CAN-2002-005408

PATIENT
  Age: 45 Year
  Sex: Male

DRUGS (3)
  1. BETASERON [Suspect]
     Indication: MULTIPLE SCLEROSIS
     Dosage: 8 MIU, EVERY 2D
     Route: 058
     Dates: start: 19990719, end: 20020728
  2. VITAMINS NOS [Concomitant]
  3. MARIJUANA [Concomitant]
     Indication: MUSCLE SPASTICITY

REACTIONS (7)
  - CYSTITIS [None]
  - EYE PAIN [None]
  - GAMMA-GLUTAMYLTRANSFERASE INCREASED [None]
  - HEADACHE [None]
  - MULTIPLE SCLEROSIS RELAPSE [None]
  - MYOCARDIAL INFARCTION [None]
  - RETINAL PIGMENT EPITHELIOPATHY [None]
